FAERS Safety Report 16601823 (Version 1)
Quarter: 2019Q3

REPORT INFORMATION
  Report Type: Spontaneous
  Country: JP (occurrence: JP)
  Receive Date: 20190719
  Receipt Date: 20190719
  Transmission Date: 20191004
  Serious: Yes (Other)
  Sender: FDA-Public Use
  Company Number: JP-PFIZER INC-2019296982

PATIENT
  Sex: Male

DRUGS (1)
  1. WYPAX [Suspect]
     Active Substance: LORAZEPAM
     Dosage: UNK
     Route: 048

REACTIONS (6)
  - Insomnia [Unknown]
  - Abnormal dreams [Unknown]
  - Blood pressure increased [Unknown]
  - Sleep disorder [Unknown]
  - Headache [Unknown]
  - Dementia [Unknown]
